FAERS Safety Report 18648164 (Version 1)
Quarter: 2020Q4

REPORT INFORMATION
  Report Type: Report from Study
  Country: None (occurrence: CA)
  Receive Date: 20201222
  Receipt Date: 20201222
  Transmission Date: 20210114
  Serious: Yes (Hospitalization)
  Sender: FDA-Public Use
  Company Number: CA-ABBVIE-20K-028-3701796-00

PATIENT
  Age: 65 Year
  Sex: Female

DRUGS (2)
  1. CORTISONE [Suspect]
     Active Substance: CORTISONE
     Indication: PRODUCT USED FOR UNKNOWN INDICATION
     Route: 065
  2. HUMIRA [Suspect]
     Active Substance: ADALIMUMAB
     Indication: CROHN^S DISEASE
     Route: 058
     Dates: start: 20180919

REACTIONS (2)
  - Constipation [Not Recovered/Not Resolved]
  - Obstruction [Recovered/Resolved]

NARRATIVE: CASE EVENT DATE: 202011
